FAERS Safety Report 9853335 (Version 1)
Quarter: 2013Q4

REPORT INFORMATION
  Report Type: Spontaneous
  Country: US (occurrence: None)
  Receive Date: 20131226
  Receipt Date: 20131226
  Transmission Date: 20140711
  Serious: No
  Sender: FDA-Public Use
  Company Number: PHEH2012US024268

PATIENT
  Age: 45 Year
  Sex: Female

DRUGS (1)
  1. GILENYA (FINGOLIMOD) CAPSULE, 0.5MG [Suspect]
     Indication: RELAPSING-REMITTING MULTIPLE SCLEROSIS
     Route: 048
     Dates: start: 20110106

REACTIONS (8)
  - Multiple sclerosis relapse [None]
  - Vomiting [None]
  - Influenza [None]
  - Cognitive disorder [None]
  - Hypoaesthesia [None]
  - Hot flush [None]
  - Fatigue [None]
  - Eye pain [None]
